FAERS Safety Report 9711771 (Version 1)
Quarter: 2013Q4

REPORT INFORMATION
  Report Type: Spontaneous
  Country: US (occurrence: US)
  Receive Date: 20131126
  Receipt Date: 20131126
  Transmission Date: 20140711
  Serious: No
  Sender: FDA-Public Use
  Company Number: US-BRISTOL-MYERS SQUIBB COMPANY-18811059

PATIENT
  Age: 41 Year
  Sex: Female
  Weight: 74.83 kg

DRUGS (3)
  1. BYDUREON [Suspect]
     Dosage: PRESCRIPTION # 051367011047
  2. LEVEMIR [Concomitant]
     Dosage: 10UNITS/SQ INJ QD
     Route: 058
  3. NOVOLOG [Concomitant]
     Dosage: 1:4 RATIO/SQ INJ WITH MEALS (PATIENT HAS BEEN ON INSULIN FOR 9.5 YEARS)

REACTIONS (3)
  - Wrong technique in drug usage process [Unknown]
  - Drug dose omission [Unknown]
  - Injection site haemorrhage [Unknown]
